FAERS Safety Report 5059499-2 (Version None)
Quarter: 2006Q2

REPORT INFORMATION
  Report Type: 
  Country: None (occurrence: None)
  Receive Date: 20060629
  Receipt Date: 20060313
  Transmission Date: 20061013
  Serious: No
  Sender: FDA-Public Use
  Company Number: PHEH2006US03364

PATIENT
  Age: 81 Year
  Sex: Male

DRUGS (1)
  1. ENABLEX [Suspect]
     Indication: HYPERTONIC BLADDER
     Dosage: 7.5 MG, QD, ORAL
     Route: 048
     Dates: start: 20060308

REACTIONS (5)
  - CONSTIPATION [None]
  - INSOMNIA [None]
  - PARAESTHESIA [None]
  - PRURITUS GENERALISED [None]
  - RESTLESSNESS [None]
